FAERS Safety Report 11123108 (Version 1)
Quarter: 2015Q2

REPORT INFORMATION
  Report Type: Spontaneous
  Country: US (occurrence: US)
  Receive Date: 20150519
  Receipt Date: 20150519
  Transmission Date: 20150821
  Serious: No
  Sender: FDA-Public Use
  Company Number: US-ABBVIE-14P-163-1317568-00

PATIENT
  Sex: Female

DRUGS (3)
  1. PROMETRIUM [Suspect]
     Active Substance: PROGESTERONE
     Route: 065
  2. PROMETRIUM [Suspect]
     Active Substance: PROGESTERONE
     Indication: PROGESTERONE DECREASED
     Route: 065
  3. ESTRADIOL. [Concomitant]
     Active Substance: ESTRADIOL
     Indication: PRODUCT USED FOR UNKNOWN INDICATION

REACTIONS (6)
  - Drug ineffective [Unknown]
  - Product physical consistency issue [Not Recovered/Not Resolved]
  - Product physical issue [Not Recovered/Not Resolved]
  - Insomnia [Not Recovered/Not Resolved]
  - Progesterone decreased [Unknown]
  - Product quality issue [Not Recovered/Not Resolved]

NARRATIVE: CASE EVENT DATE: 2010
